FAERS Safety Report 4833386-4 (Version None)
Quarter: 2005Q4

REPORT INFORMATION
  Report Type: 
  Country: None (occurrence: None)
  Receive Date: 20051117
  Receipt Date: 20051111
  Transmission Date: 20060501
  Serious: Yes (Life-Threatening, Hospitalization)
  Sender: FDA-Public Use
  Company Number: GBWYE138815NOV05

PATIENT
  Age: 69 Year
  Sex: Female

DRUGS (8)
  1. EFFEXOR [Suspect]
     Dosage: 75 MG 1X PER 1 DAY, ORAL
     Route: 048
     Dates: start: 20050601, end: 20051005
  2. AMLODIPINE (AMLODIPINE, , 0) [Suspect]
     Dosage: 10 MG 1X PER 1 DAY, ORAL
     Route: 048
  3. OXPRENOLOL (OXPRENOLOL, , 0) [Suspect]
     Dosage: 40 MG 3X PER 1 DAY, ORAL
     Route: 048
     Dates: end: 20051005
  4. LISINOPRIL [Concomitant]
  5. ASPIRIN [Concomitant]
  6. METFORMIN HCL [Concomitant]
  7. ATORVASTATIN CALCIUM [Concomitant]
  8. LANTUS [Concomitant]

REACTIONS (3)
  - ATRIOVENTRICULAR BLOCK COMPLETE [None]
  - DYSPNOEA [None]
  - MALAISE [None]
